FAERS Safety Report 4398540-7 (Version None)
Quarter: 2004Q3

REPORT INFORMATION
  Report Type: 
  Country: None (occurrence: None)
  Receive Date: 20040715
  Receipt Date: 20040701
  Transmission Date: 20050211
  Serious: Yes (Life-Threatening, Hospitalization, Disabling)
  Sender: FDA-Public Use
  Company Number: GB-GLAXOSMITHKLINE-B0337749A

PATIENT
  Age: 61 Year
  Sex: Female
  Weight: 69 kg

DRUGS (2)
  1. ZYBAN [Suspect]
     Indication: SMOKING CESSATION THERAPY
     Dosage: 150MG TWICE PER DAY
     Route: 048
     Dates: start: 20040512, end: 20040604
  2. ZOPICLONE [Concomitant]
     Indication: INSOMNIA
     Dosage: 3.75MG PER DAY
     Route: 048
     Dates: start: 20040512

REACTIONS (4)
  - CEREBRAL INFARCTION [None]
  - DYSPHAGIA [None]
  - FACIAL PARESIS [None]
  - SPEECH DISORDER [None]
